FAERS Safety Report 7481640-2 (Version None)
Quarter: 2011Q2

REPORT INFORMATION
  Report Type: 
  Country: None (occurrence: None)
  Receive Date: 20110516
  Receipt Date: 20110506
  Transmission Date: 20111010
  Serious: Yes (Hospitalization)
  Sender: FDA-Public Use
  Company Number: IT-TEVA-257127ISR

PATIENT
  Sex: Male

DRUGS (2)
  1. OXALIPLATIN [Suspect]
     Dosage: 50 MILLIGRAM;
     Route: 042
     Dates: start: 20101125, end: 20101125
  2. OXALIPLATIN [Suspect]
     Indication: COLON CANCER
     Dosage: 100 MILLIGRAM;
     Route: 042
     Dates: start: 20101125, end: 20101125

REACTIONS (2)
  - LOSS OF CONSCIOUSNESS [None]
  - CARDIAC ARREST [None]
